FAERS Safety Report 4723840-8 (Version None)
Quarter: 2005Q3

REPORT INFORMATION
  Report Type: 
  Country: None (occurrence: None)
  Receive Date: 20050721
  Receipt Date: 20050706
  Transmission Date: 20060218
  Serious: Yes (Other)
  Sender: FDA-Public Use
  Company Number: 2004-0007305

PATIENT
  Age: 37 Year
  Sex: Female
  Weight: 73.9363 kg

DRUGS (6)
  1. VIREAD [Suspect]
     Indication: HIV INFECTION
     Dosage: 300 MG, 1 IN 1 D, ORAL
     Route: 048
     Dates: start: 20030924, end: 20040701
  2. VIREAD [Suspect]
     Indication: HIV INFECTION
     Dosage: 300 MG, 1 IN 1 D, ORAL
     Route: 048
     Dates: start: 20040701
  3. SUSTIVA [Concomitant]
  4. VIDEX EC [Concomitant]
  5. LEXIVA (FOSAMPRENA0VIR) [Concomitant]
  6. RITONAVIR (RITONAVIR) [Concomitant]

REACTIONS (8)
  - ADRENAL MASS [None]
  - BACK PAIN [None]
  - BLOOD BILIRUBIN INCREASED [None]
  - JAUNDICE [None]
  - NEPHROLITHIASIS [None]
  - POLLAKIURIA [None]
  - SOMNOLENCE [None]
  - WEIGHT DECREASED [None]
